FAERS Safety Report 8157653-4 (Version None)
Quarter: 2012Q1

REPORT INFORMATION
  Report Type: 
  Country: None (occurrence: None)
  Receive Date: 20120222
  Receipt Date: 20120209
  Transmission Date: 20120608
  Serious: Yes (Hospitalization)
  Sender: FDA-Public Use
  Company Number: HU-ELI_LILLY_AND_COMPANY-HU201105000269

PATIENT
  Sex: Male
  Weight: 87 kg

DRUGS (16)
  1. TRAMADOL HCL [Concomitant]
     Indication: ARTHRALGIA
     Dosage: UNK
     Dates: start: 20101224
  2. EMETRON [Concomitant]
     Dosage: UNK
     Dates: start: 20110317, end: 20110321
  3. EMETRON [Concomitant]
     Dosage: UNK
     Dates: start: 20110329, end: 20110402
  4. ZOFRAN [Concomitant]
     Dosage: UNK
     Dates: start: 20110328, end: 20110328
  5. NECITUMUMAB (11F8) (LY3012211) [Suspect]
     Indication: NON-SMALL CELL LUNG CANCER
     Dosage: 800 MG, UNK
     Dates: start: 20110223, end: 20110328
  6. SOLU-MEDROL [Concomitant]
     Indication: ANTIEMETIC SUPPORTIVE CARE
     Dosage: UNK
     Dates: start: 20110303, end: 20110303
  7. GEMCITABINE HYDROCHLORIDE [Suspect]
     Indication: NON-SMALL CELL LUNG CANCER
     Dosage: 2500 MG, OTHER
     Dates: start: 20110223, end: 20110328
  8. EMETRON [Concomitant]
     Indication: ANTIEMETIC SUPPORTIVE CARE
     Dosage: UNK
     Dates: start: 20110224, end: 20110228
  9. SOLU-MEDROL [Concomitant]
     Dosage: UNK
     Dates: start: 20110328, end: 20110328
  10. CISPLATIN [Suspect]
     Indication: NON-SMALL CELL LUNG CANCER
     Dosage: 120 MG, OTHER
     Dates: start: 20110223, end: 20110316
  11. SODIUM CHLORIDE [Concomitant]
     Indication: PROPHYLAXIS
     Dosage: UNK
     Dates: start: 20110223, end: 20110223
  12. MANNISOL B [Concomitant]
     Indication: PROPHYLAXIS
     Dosage: UNK
     Dates: start: 20110223, end: 20110223
  13. ZOFRAN [Concomitant]
     Indication: ANTIEMETIC SUPPORTIVE CARE
     Dosage: UNK
     Dates: start: 20110223, end: 20110223
  14. ZOFRAN [Concomitant]
     Dosage: UNK
     Dates: start: 20110316, end: 20110316
  15. SOLU-MEDROL [Concomitant]
     Dosage: UNK
     Dates: start: 20110316, end: 20110316
  16. CLOBETASOL PROPIONATE [Concomitant]
     Indication: DERMATITIS ACNEIFORM
     Dosage: UNK
     Dates: start: 20110316, end: 20110328

REACTIONS (1)
  - DEEP VEIN THROMBOSIS [None]
